FAERS Safety Report 7530157-5 (Version None)
Quarter: 2011Q2

REPORT INFORMATION
  Report Type: 
  Country: None (occurrence: None)
  Receive Date: 20110607
  Receipt Date: 20110530
  Transmission Date: 20111010
  Serious: Yes (Congenital Anomaly, Other)
  Sender: FDA-Public Use
  Company Number: PHHY2011DK47151

PATIENT
  Sex: Male
  Weight: 14 kg

DRUGS (1)
  1. CITALOPRAM HYDROBROMIDE [Suspect]
     Indication: DEPRESSION
     Dosage: 10 MG/DAY
     Route: 064
     Dates: start: 20060601, end: 20080301

REACTIONS (4)
  - LENNOX-GASTAUT SYNDROME [None]
  - EPILEPSY [None]
  - BRAIN MALFORMATION [None]
  - DRUG EXPOSURE DURING PREGNANCY [None]
